FAERS Safety Report 9444861 (Version 2)
Quarter: 2013Q3

REPORT INFORMATION
  Report Type: Spontaneous
  Country: PA (occurrence: PA)
  Receive Date: 20130807
  Receipt Date: 20130829
  Transmission Date: 20140515
  Serious: Yes (Death)
  Sender: FDA-Public Use
  Company Number: PA-BAXTER-2013BAX031081

PATIENT
  Sex: 0

DRUGS (9)
  1. CLORURO DE SODIO AL 0.9% [Suspect]
     Indication: DEHYDRATION
     Route: 065
  2. CLORURO DE SODIO AL 0.9% [Suspect]
     Route: 065
  3. CLORURO DE SODIO AL 0.9% [Suspect]
     Route: 065
  4. DEXTROSA AL 5% EN AGUA [Suspect]
     Indication: DEHYDRATION
     Route: 065
  5. FAT EMULSION [Suspect]
     Indication: PRODUCT USED FOR UNKNOWN INDICATION
     Route: 065
  6. AMPICILLIN [Suspect]
     Indication: PRODUCT USED FOR UNKNOWN INDICATION
     Route: 042
  7. AMIKACIN [Suspect]
     Indication: PRODUCT USED FOR UNKNOWN INDICATION
     Route: 042
  8. HEPARIN [Suspect]
     Indication: PRODUCT USED FOR UNKNOWN INDICATION
     Route: 065
  9. BENZYL ALCOHOL [Suspect]
     Indication: PRODUCT USED FOR UNKNOWN INDICATION
     Route: 065

REACTIONS (2)
  - Toxicity to various agents [Fatal]
  - Drug interaction [Fatal]
